FAERS Safety Report 4880997-6 (Version None)
Quarter: 2005Q4

REPORT INFORMATION
  Report Type: 
  Country: None (occurrence: None)
  Receive Date: 20051223
  Receipt Date: 20051024
  Transmission Date: 20060501
  Serious: Yes (Hospitalization)
  Sender: FDA-Public Use
  Company Number: 05P-163-0315008-00

PATIENT
  Age: 83 Year
  Sex: Female
  Weight: 52.6173 kg

DRUGS (8)
  1. HUMIRA [Suspect]
     Indication: RHEUMATOID ARTHRITIS
     Dosage: 40 MG, 1 IN 2 WK, SUBCUTANEOUS
     Route: 058
     Dates: start: 20040201
  2. FOSAMAX WITH VITAMIN D [Concomitant]
  3. ALENDRONATE SODIUM [Concomitant]
  4. FOLIC ACID [Concomitant]
  5. TREXALL [Concomitant]
  6. NAPRAPAC 250 (COPACKAGED) [Concomitant]
  7. VICODIN [Concomitant]
  8. TRENTAL [Concomitant]

REACTIONS (1)
  - PNEUMONIA [None]
